FAERS Safety Report 16732042 (Version 9)
Quarter: 2020Q1

REPORT INFORMATION
  Report Type: Report from Study
  Country: DE (occurrence: DE)
  Receive Date: 20190822
  Receipt Date: 20200313
  Transmission Date: 20200409
  Serious: Yes (Hospitalization, Other)
  Sender: FDA-Public Use
  Company Number: DE-SHIRE-DE201922742

PATIENT

DRUGS (9)
  1. CHOLESTYRAMINE. [Concomitant]
     Active Substance: CHOLESTYRAMINE
     Indication: SHORT-BOWEL SYNDROME
  2. TEDUGLUTIDE [Suspect]
     Active Substance: TEDUGLUTIDE
     Dosage: 0.38 MILLIGRAM, 1.25 MG, 1X/DAY:QD
     Route: 058
     Dates: start: 20190816
  3. TEDUGLUTIDE [Suspect]
     Active Substance: TEDUGLUTIDE
     Dosage: 0.38 MILLILITRE, 1.25 MILLIGRAM, 1X/DAY:QD
     Route: 058
     Dates: start: 20190705
  4. URSOFALK [Concomitant]
     Active Substance: URSODIOL
     Indication: SHORT-BOWEL SYNDROME
  5. VIGANTOL [COLECALCIFEROL] [Concomitant]
     Active Substance: CHOLECALCIFEROL
     Indication: SHORT-BOWEL SYNDROME
  6. TEDUGLUTIDE [Suspect]
     Active Substance: TEDUGLUTIDE
     Dosage: 0.38 MILLILITRE, 1.25 MILLIGRAM, 1X/DAY:QD
     Route: 058
     Dates: start: 20190705
  7. TEDUGLUTIDE [Suspect]
     Active Substance: TEDUGLUTIDE
     Dosage: 0.38 MILLILITRE, 1.25 MILLIGRAM, 1X/DAY:QD
     Route: 058
     Dates: start: 20191106
  8. ANTRA [OMEPRAZOLE SODIUM] [Concomitant]
     Indication: SHORT-BOWEL SYNDROME
  9. TEDUGLUTIDE [Suspect]
     Active Substance: TEDUGLUTIDE
     Indication: SHORT-BOWEL SYNDROME
     Dosage: 0.38 MILLILITRE, 1.25 MILLIGRAM, 1X/DAY:QD
     Route: 058
     Dates: start: 20190705, end: 20191102

REACTIONS (11)
  - Weight decreased [Recovering/Resolving]
  - Frequent bowel movements [Not Recovered/Not Resolved]
  - Abdominal pain [Recovered/Resolved]
  - Nasopharyngitis [Unknown]
  - Diarrhoea [Unknown]
  - Stoma complication [Recovered/Resolved]
  - Stoma site inflammation [Recovering/Resolving]
  - Stoma site infection [Not Recovered/Not Resolved]
  - Device related infection [Recovered/Resolved]
  - Gastrointestinal fungal infection [Recovering/Resolving]
  - Asthenia [Not Recovered/Not Resolved]

NARRATIVE: CASE EVENT DATE: 20190710
